FAERS Safety Report 24982374 (Version 2)
Quarter: 2025Q1

REPORT INFORMATION
  Report Type: Spontaneous
  Country: AR (occurrence: AR)
  Receive Date: 20250218
  Receipt Date: 20250327
  Transmission Date: 20250408
  Serious: Yes (Other)
  Sender: SANDOZ
  Company Number: AR-002147023-NVSC2025AR019681

PATIENT
  Sex: Female

DRUGS (6)
  1. FULVESTRANT [Suspect]
     Active Substance: FULVESTRANT
     Indication: Product used for unknown indication
     Route: 065
  2. KISQALI [Suspect]
     Active Substance: RIBOCICLIB
     Indication: Breast cancer metastatic
     Route: 065
     Dates: start: 20240409
  3. LETROZOLE [Suspect]
     Active Substance: LETROZOLE
     Indication: Breast cancer metastatic
     Route: 065
     Dates: start: 20240409
  4. ZOMETA [Suspect]
     Active Substance: ZOLEDRONIC ACID
     Dosage: UNK, Q3MO
     Route: 065
  5. ZOMETA [Suspect]
     Active Substance: ZOLEDRONIC ACID
     Indication: Breast cancer metastatic
     Route: 065
     Dates: start: 20240409
  6. ZOMETA [Suspect]
     Active Substance: ZOLEDRONIC ACID
     Route: 065
     Dates: start: 20240404

REACTIONS (2)
  - Liver disorder [Unknown]
  - Tumour marker abnormal [Unknown]
